FAERS Safety Report 7313531-1 (Version None)
Quarter: 2011Q1

REPORT INFORMATION
  Report Type: 
  Country: None (occurrence: None)
  Receive Date: 20110225
  Receipt Date: 20110203
  Transmission Date: 20110831
  Serious: Yes (Death, Hospitalization)
  Sender: FDA-Public Use
  Company Number: JP-BAYER-2010-003796

PATIENT
  Sex: Female
  Weight: 55 kg

DRUGS (8)
  1. PERDIPINE [Concomitant]
     Dosage: DAILY DOSE 60 MG
     Route: 048
     Dates: start: 20101126, end: 20101213
  2. OMEPRAL [Concomitant]
     Dosage: DAILY DOSE 20 MG
     Route: 048
     Dates: start: 20101126, end: 20101213
  3. NU LOTAN [Concomitant]
     Dosage: DAILY DOSE 50 MG
     Route: 048
     Dates: start: 20101126, end: 20101213
  4. NEXAVAR [Suspect]
     Indication: HEPATIC NEOPLASM MALIGNANT
     Dosage: DAILY DOSE 800 MG
     Route: 048
     Dates: start: 20101119, end: 20101204
  5. NEXAVAR [Suspect]
     Dosage: DAILY DOSE 400 MG
     Dates: start: 20101205, end: 20101213
  6. LOXONIN [Concomitant]
     Dosage: DAILY DOSE 120 MG
     Route: 048
     Dates: start: 20101119, end: 20101213
  7. LASIX [Concomitant]
     Dosage: DAILY DOSE 20 MG
     Route: 048
     Dates: start: 20101126, end: 20101213
  8. DEPAS [Concomitant]
     Dosage: DAILY DOSE 1 MG
     Route: 048
     Dates: start: 20101126, end: 20101213

REACTIONS (5)
  - STOMATITIS [None]
  - BLOOD BILIRUBIN INCREASED [None]
  - BLOOD CREATININE INCREASED [None]
  - HEPATIC FAILURE [None]
  - RASH [None]
